FAERS Safety Report 10464113 (Version 1)
Quarter: 2014Q3

REPORT INFORMATION
  Report Type: Spontaneous
  Country: US (occurrence: None)
  Receive Date: 20140918
  Receipt Date: 20140918
  Transmission Date: 20150326
  Serious: Yes (Other)
  Sender: FDA-Public Use
  Company Number: None

PATIENT

DRUGS (1)
  1. BACLOFEN 10MG NORTHSTAR [Suspect]
     Active Substance: BACLOFEN
     Dates: start: 20140916, end: 20140916

REACTIONS (1)
  - Product label on wrong product [None]

NARRATIVE: CASE EVENT DATE: 20140916
